FAERS Safety Report 5634406-X (Version None)
Quarter: 2008Q1

REPORT INFORMATION
  Report Type: 
  Country: None (occurrence: None)
  Receive Date: 20080222
  Receipt Date: 20080219
  Transmission Date: 20080703
  Serious: Yes (Other)
  Sender: FDA-Public Use
  Company Number: GB-BRISTOL-MYERS SQUIBB COMPANY-14080360

PATIENT

DRUGS (5)
  1. DIDANOSINE [Suspect]
  2. STAVUDINE [Suspect]
  3. ABACAVIR [Suspect]
  4. ZIDOVUDINE [Suspect]
  5. LAMIVUDINE [Suspect]

REACTIONS (1)
  - MYOCARDIAL INFARCTION [None]
